FAERS Safety Report 8360943-3 (Version None)
Quarter: 2012Q2

REPORT INFORMATION
  Report Type: 
  Country: None (occurrence: None)
  Receive Date: 20120515
  Receipt Date: 20120507
  Transmission Date: 20120825
  Serious: Yes (Hospitalization)
  Sender: FDA-Public Use
  Company Number: US-ASTRAZENECA-2011SE28087

PATIENT
  Age: 33 Year
  Sex: Male
  Weight: 108.9 kg

DRUGS (6)
  1. VALIUM [Concomitant]
  2. SEROQUEL [Suspect]
     Route: 048
  3. AMBIEN [Concomitant]
  4. NEXIUM [Suspect]
     Route: 048
  5. SEROQUEL [Suspect]
     Indication: BIPOLAR I DISORDER
     Route: 048
  6. SYMBICORT [Suspect]
     Dosage: 160/4.5 MCG,TWO PUFFS, TWO TIMES A DAY
     Route: 055

REACTIONS (7)
  - ADVERSE EVENT [None]
  - PNEUMONIA [None]
  - DEPRESSION [None]
  - MOOD SWINGS [None]
  - DISTURBANCE IN ATTENTION [None]
  - INTENTIONAL DRUG MISUSE [None]
  - MALAISE [None]
